FAERS Safety Report 7752132-8 (Version None)
Quarter: 2011Q3

REPORT INFORMATION
  Report Type: 
  Country: None (occurrence: None)
  Receive Date: 20110915
  Receipt Date: 20110908
  Transmission Date: 20111222
  Serious: Yes (Other)
  Sender: FDA-Public Use
  Company Number: US-PFIZER INC-2011212068

PATIENT
  Sex: Female
  Weight: 63.5 kg

DRUGS (10)
  1. CYMBALTA [Suspect]
     Indication: HOT FLUSH
     Dosage: 60 MG, 2X/DAY
     Dates: start: 20110301
  2. CYMBALTA [Suspect]
     Dosage: 20 MG, DAILY
     Dates: start: 20110101
  3. CYMBALTA [Suspect]
     Dosage: UNK
  4. LISINOPRIL [Suspect]
     Indication: HYPERTENSION
     Dosage: 5 MG, DAILY
     Dates: start: 20110101, end: 20110101
  5. EFFEXOR [Suspect]
     Indication: HOT FLUSH
     Dosage: N/A, 3X/DAY
     Route: 048
     Dates: start: 20101201, end: 20110101
  6. CYMBALTA [Suspect]
     Dosage: 60 MG, DAILY
     Dates: start: 20110101, end: 20110101
  7. VITAMIN D [Concomitant]
     Dosage: UNK
  8. CYMBALTA [Suspect]
     Dosage: 20 MG, 2X/DAY
     Dates: start: 20110101, end: 20110101
  9. LYRICA [Concomitant]
     Indication: PROCEDURAL PAIN
     Dosage: UNK
  10. TAMOXIFEN [Concomitant]
     Indication: BREAST CANCER
     Dosage: UNK

REACTIONS (2)
  - HYPERTENSION [None]
  - DRUG INEFFECTIVE [None]
